FAERS Safety Report 11459493 (Version 1)
Quarter: 2015Q3

REPORT INFORMATION
  Report Type: Report from Study
  Country: US (occurrence: US)
  Receive Date: 20150904
  Receipt Date: 20150904
  Transmission Date: 20151125
  Serious: Yes (Hospitalization)
  Sender: FDA-Public Use
  Company Number: US-GILEAD-2015-0170108

PATIENT
  Age: 51 Year
  Sex: Male

DRUGS (2)
  1. RANOLAZINE [Suspect]
     Active Substance: RANOLAZINE
     Indication: PRODUCT USED FOR UNKNOWN INDICATION
     Dosage: 500 MG, BID
     Route: 048
     Dates: start: 20130606
  2. IRON                               /00023503/ [Concomitant]
     Active Substance: IRON
     Indication: ANAEMIA

REACTIONS (3)
  - Sluggishness [Recovered/Resolved]
  - Anaemia [Unknown]
  - Chest pain [Recovered/Resolved]
